FAERS Safety Report 7580857-6 (Version None)
Quarter: 2011Q2

REPORT INFORMATION
  Report Type: 
  Country: None (occurrence: None)
  Receive Date: 20110622
  Receipt Date: 20110607
  Transmission Date: 20111010
  Serious: Yes (Hospitalization, Other)
  Sender: FDA-Public Use
  Company Number: 2011MA006904

PATIENT
  Age: 59 Year
  Sex: Female

DRUGS (20)
  1. AZATHIOPRINE [Concomitant]
  2. ZOPICLONE [Concomitant]
  3. FLUCONAZOLE [Concomitant]
  4. LOPERAMIDE [Concomitant]
  5. ALFACALCIDOL [Concomitant]
  6. PANTOPRAZOLE [Concomitant]
  7. AMPICILLIN SODIUM [Concomitant]
  8. AMOXICILLIN [Concomitant]
  9. POTASSIUM [Concomitant]
  10. METOCLOPRAMIDE [Concomitant]
  11. PHENYTOIN [Suspect]
     Indication: CONVULSION
     Dosage: 700 MG; QD;
     Dates: start: 20000101, end: 20080101
  12. CALCIUM CARBONATE [Concomitant]
  13. CLONAZEPAM [Concomitant]
  14. GABAPENTIN [Concomitant]
  15. PROPIOMAZINE [Concomitant]
  16. CITALOPRAM HYDROBROMIDE [Concomitant]
  17. PREDNISOLONE [Concomitant]
  18. CLONIDINE [Concomitant]
  19. FUROSEMIDE [Concomitant]
  20. METHADONE HCL [Concomitant]

REACTIONS (19)
  - RESPIRATORY MONILIASIS [None]
  - ALTERED STATE OF CONSCIOUSNESS [None]
  - SPEECH DISORDER [None]
  - FATIGUE [None]
  - GAMMA-GLUTAMYLTRANSFERASE INCREASED [None]
  - ENZYME ABNORMALITY [None]
  - CONFUSIONAL STATE [None]
  - TOXICITY TO VARIOUS AGENTS [None]
  - DRUG INTERACTION [None]
  - INFLAMMATION [None]
  - ANAEMIA [None]
  - ANTICONVULSANT DRUG LEVEL BELOW THERAPEUTIC [None]
  - COGNITIVE DISORDER [None]
  - ORAL CANDIDIASIS [None]
  - BLOOD ALKALINE PHOSPHATASE INCREASED [None]
  - C-REACTIVE PROTEIN INCREASED [None]
  - VERTIGO [None]
  - ATAXIA [None]
  - DIARRHOEA [None]
